FAERS Safety Report 25243990 (Version 3)
Quarter: 2025Q2

REPORT INFORMATION
  Report Type: Spontaneous
  Country: GB (occurrence: GB)
  Receive Date: 20250428
  Receipt Date: 20250513
  Transmission Date: 20250717
  Serious: Yes (Death, Other)
  Sender: TEVA
  Company Number: None

PATIENT
  Age: 78 Year
  Sex: Male

DRUGS (1)
  1. PREGABALIN [Suspect]
     Active Substance: PREGABALIN
     Indication: Product used for unknown indication
     Dosage: DAILY DOSE: 600 MG DAILY
     Route: 065

REACTIONS (7)
  - Cardiac arrest [Not Recovered/Not Resolved]
  - Overdose [Not Recovered/Not Resolved]
  - Benign prostatic hyperplasia [Not Recovered/Not Resolved]
  - Coronary artery occlusion [Not Recovered/Not Resolved]
  - Acute left ventricular failure [Fatal]
  - Myocardial infarction [Not Recovered/Not Resolved]
  - Left ventricular failure [Not Recovered/Not Resolved]
